FAERS Safety Report 9392009 (Version 1)
Quarter: 2013Q3

REPORT INFORMATION
  Report Type: Spontaneous
  Country: US (occurrence: US)
  Receive Date: 20130709
  Receipt Date: 20130709
  Transmission Date: 20140515
  Serious: Yes (Hospitalization, Other)
  Sender: FDA-Public Use
  Company Number: US-ELI_LILLY_AND_COMPANY-US201307000368

PATIENT
  Sex: Male

DRUGS (10)
  1. HUMALOG LISPRO [Suspect]
     Indication: DIABETES MELLITUS
     Dosage: 10 U, QD
  2. HUMALOG LISPRO [Suspect]
     Dosage: UNK, PRN
  3. CILOSTAZOL [Concomitant]
     Dosage: 50 MG, BID
  4. CARVEDILOL [Concomitant]
     Dosage: 2.5 MG, QD
  5. WARFARIN [Concomitant]
     Dosage: 7.5 MG, QD
  6. FUROSEMIDE [Concomitant]
     Dosage: 40 MG, TID
  7. OXYGEN [Concomitant]
  8. ASPIRIN [Concomitant]
     Dosage: 81 MG, BID
  9. LANTUS [Concomitant]
     Dosage: 20 U, QD
  10. NIACIN [Concomitant]

REACTIONS (3)
  - Coronary artery occlusion [Unknown]
  - Renal disorder [Unknown]
  - Diarrhoea [Not Recovered/Not Resolved]
